FAERS Safety Report 10370135 (Version 1)
Quarter: 2014Q3

REPORT INFORMATION
  Report Type: Spontaneous
  Country: DE (occurrence: DE)
  Receive Date: 20140808
  Receipt Date: 20140808
  Transmission Date: 20150326
  Serious: Yes (Other)
  Sender: FDA-Public Use
  Company Number: DE-BRISTOL-MYERS SQUIBB COMPANY-21264668

PATIENT
  Age: 1 Day
  Sex: Male
  Weight: 4 kg

DRUGS (4)
  1. VIGANTOLETTEN [Concomitant]
     Active Substance: CHOLECALCIFEROL
     Route: 064
  2. METFORMIN HCL [Suspect]
     Active Substance: METFORMIN HYDROCHLORIDE
     Route: 064
     Dates: start: 20121005, end: 20130627
  3. RENNIE [Concomitant]
     Active Substance: MAGNESIUM CARBONATE
     Route: 064
  4. INSULIN BASAL H [Concomitant]
     Active Substance: INSULIN NOS
     Route: 064

REACTIONS (1)
  - Eyelid ptosis congenital [Unknown]

NARRATIVE: CASE EVENT DATE: 20130628
